FAERS Safety Report 6891835-4 (Version None)
Quarter: 2010Q3

REPORT INFORMATION
  Report Type: 
  Country: None (occurrence: None)
  Receive Date: 20100731
  Receipt Date: 20071029
  Transmission Date: 20110219
  Serious: No
  Sender: FDA-Public Use
  Company Number: US-PFIZER INC-2007091414

PATIENT
  Age: 60 Year
  Sex: Female

DRUGS (2)
  1. NEURONTIN [Suspect]
  2. PROZAC [Suspect]

REACTIONS (1)
  - ANORGASMIA [None]
